FAERS Safety Report 8827117 (Version 1)
Quarter: 2012Q4

REPORT INFORMATION
  Report Type: 
  Country: AU (occurrence: AU)
  Receive Date: 20121006
  Receipt Date: 20121006
  Transmission Date: 20130627
  Serious: Yes (Hospitalization)
  Sender: FDA-Public Use
  Company Number: AU-ACCORD-014864

PATIENT
  Age: 84 Year
  Sex: Male

DRUGS (11)
  1. HYDROCHLOROTHIAZIDE [Concomitant]
  2. AMLODIPINE [Concomitant]
  3. RABEPRAZOLE [Concomitant]
  4. CLOPIDOGREL [Concomitant]
  5. PREDNISOLONE [Concomitant]
  6. COLCHICINE [Suspect]
     Indication: GOUT FLARE
     Dosage: Started with 1 mg daily for 3 days.
  7. OXYCODONE [Concomitant]
  8. IRBESARTAN [Concomitant]
  9. EZETIMIBE [Concomitant]
  10. SIMVASTATIN [Interacting]
     Indication: DRUG USE FOR UNKNOWN INDICATION
  11. FLUTICASONE W/SALMETEROL [Concomitant]
     Route: 055

REACTIONS (3)
  - Myopathy [Recovered/Resolved]
  - Colonic obstruction [Recovered/Resolved]
  - Drug interaction [Unknown]
